FAERS Safety Report 16995625 (Version 1)
Quarter: 2019Q4

REPORT INFORMATION
  Report Type: Spontaneous
  Country: GB (occurrence: GB)
  Receive Date: 20191105
  Receipt Date: 20191105
  Transmission Date: 20200122
  Serious: Yes (Other)
  Sender: FDA-Public Use
  Company Number: GB-MYLANLABS-2019M1102384

PATIENT
  Age: 30 Year
  Sex: Female

DRUGS (6)
  1. MERCAPTAMINE MYLAN [Suspect]
     Active Substance: CYSTEAMINE
     Indication: CYSTINOSIS
     Dosage: UNK
     Route: 048
  2. PREDNISOLONE. [Concomitant]
     Active Substance: PREDNISOLONE
     Indication: IMMUNOSUPPRESSION
     Dosage: UNK
  3. ENOXAPARIN [Concomitant]
     Active Substance: ENOXAPARIN
     Indication: PROPHYLAXIS
     Dosage: UNK
  4. MERCAPTAMINE MYLAN [Suspect]
     Active Substance: CYSTEAMINE
     Dosage: UNK
  5. ASPIRIN                            /00002701/ [Concomitant]
     Active Substance: ASPIRIN
     Indication: PROPHYLAXIS
     Dosage: UNK
  6. TACROLIMUS. [Concomitant]
     Active Substance: TACROLIMUS
     Indication: IMMUNOSUPPRESSION
     Dosage: UNK

REACTIONS (6)
  - Ectopic pregnancy [Unknown]
  - Abortion spontaneous [Recovered/Resolved]
  - Hydronephrosis [Unknown]
  - Maternal exposure during pregnancy [Recovered/Resolved]
  - Antiphospholipid antibodies positive [Unknown]
  - Pre-eclampsia [Unknown]
